FAERS Safety Report 8046867-X (Version None)
Quarter: 2012Q1

REPORT INFORMATION
  Report Type: 
  Country: None (occurrence: None)
  Receive Date: 20120116
  Receipt Date: 20120106
  Transmission Date: 20120608
  Serious: Yes (Hospitalization)
  Sender: FDA-Public Use
  Company Number: US-BAYER-2011-032068

PATIENT
  Age: 35 Year
  Sex: Female
  Weight: 61.224 kg

DRUGS (8)
  1. BISOPROLOL FUMARATE [Concomitant]
     Indication: MITRAL VALVE PROLAPSE
     Dosage: DAILY
  2. LEVOTHYROXINE SODIUM [Concomitant]
     Indication: THYROID DISORDER
     Dosage: DAILY
  3. DROSPIRENONE AND ETHINYL ESTRADIOL [Suspect]
     Indication: CONTRACEPTION
     Dosage: UNK
     Route: 048
     Dates: start: 20100101
  4. DIPHENOXYLATE [Concomitant]
     Indication: DIARRHOEA
     Dosage: DAILY
  5. ACETAMINOPHEN AND HYDROCODONE BITARTRATE [Concomitant]
  6. YAZ [Suspect]
     Indication: CONTRACEPTION
     Dosage: UNK
     Route: 048
     Dates: start: 20040901, end: 20100101
  7. SONATA [Concomitant]
  8. YASMIN [Suspect]
     Indication: CONTRACEPTION
     Dosage: UNK
     Route: 048
     Dates: start: 20040901, end: 20100101

REACTIONS (8)
  - GALLBLADDER DISORDER [None]
  - CHOLECYSTITIS CHRONIC [None]
  - ANXIETY [None]
  - INJURY [None]
  - GENERAL PHYSICAL HEALTH DETERIORATION [None]
  - BILE DUCT OBSTRUCTION [None]
  - PAIN [None]
  - EMOTIONAL DISTRESS [None]
